FAERS Safety Report 7051778-2 (Version None)
Quarter: 2010Q4

REPORT INFORMATION
  Report Type: 
  Country: None (occurrence: None)
  Receive Date: 20101019
  Receipt Date: 20101011
  Transmission Date: 20110411
  Serious: Yes (Other)
  Sender: FDA-Public Use
  Company Number: DE-NAPPMUNDI-DEU-2010-0006615

PATIENT
  Age: 65 Year
  Sex: Male

DRUGS (3)
  1. PALLADON RETARD 16 MG [Suspect]
     Indication: CANCER PAIN
     Dosage: 16 MG, BID
     Route: 048
  2. PALLADON 1,3MG HARTKAPSELN [Suspect]
     Indication: CANCER PAIN
     Dosage: 1.3 MG, PRN
     Route: 048
  3. MITOMYCIN [Concomitant]

REACTIONS (1)
  - ANAEMIA [None]
